FAERS Safety Report 9474895 (Version 3)
Quarter: 2013Q4

REPORT INFORMATION
  Report Type: Report from Study
  Country: US (occurrence: US)
  Receive Date: 20130823
  Receipt Date: 20131022
  Transmission Date: 20140711
  Serious: Yes (Life-Threatening, Hospitalization, Other)
  Sender: FDA-Public Use
  Company Number: US-GILEAD-2013-0081729

PATIENT
  Age: 44 Year
  Sex: Female
  Weight: 82.3 kg

DRUGS (5)
  1. EMTRICITABINE/TENOFOVIR DISOPROXIL FUMARATE [Suspect]
     Indication: ACQUIRED IMMUNODEFICIENCY SYNDROME
     Dosage: 1 DF, QD
     Dates: start: 20130808, end: 20130814
  2. ATAZANAVIR [Suspect]
     Indication: ACQUIRED IMMUNODEFICIENCY SYNDROME
     Dosage: 300 MG, QD
     Dates: start: 20130808, end: 20130814
  3. RITONAVIR [Suspect]
     Indication: ACQUIRED IMMUNODEFICIENCY SYNDROME
     Dosage: 100 MG, QD
     Dates: start: 20130808, end: 20130814
  4. PLACEBO [Suspect]
     Indication: ACQUIRED IMMUNODEFICIENCY SYNDROME
     Dosage: 1 DF, QD
     Dates: start: 20130808, end: 20130814
  5. BACTRIM [Concomitant]
     Dosage: UNK
     Dates: start: 20130710, end: 20130814

REACTIONS (1)
  - Stevens-Johnson syndrome [Recovered/Resolved]
